FAERS Safety Report 19462337 (Version 2)
Quarter: 2022Q2

REPORT INFORMATION
  Report Type: Report from Study
  Country: DE (occurrence: DE)
  Receive Date: 20210625
  Receipt Date: 20220603
  Transmission Date: 20220721
  Serious: Yes (Hospitalization)
  Sender: FDA-Public Use
  Company Number: DE-NOVARTISPH-NVSC2021DE038349

PATIENT
  Age: 40 Year
  Sex: Female
  Weight: 68 kg

DRUGS (22)
  1. LETROZOLE [Suspect]
     Active Substance: LETROZOLE
     Indication: HER2 negative breast cancer
     Dosage: UNK
     Route: 048
  2. RIBOCICLIB [Suspect]
     Active Substance: RIBOCICLIB
     Indication: HER2 negative breast cancer
     Dosage: 600 MG, QD
     Route: 048
     Dates: start: 20200427, end: 20201201
  3. EPIRUBICIN [Suspect]
     Active Substance: EPIRUBICIN
     Indication: Neoplasm malignant
     Dosage: 159.30 MG, Q3W
     Route: 042
     Dates: start: 20201230, end: 20210122
  4. CYCLOPHOSPHAMIDE [Suspect]
     Active Substance: CYCLOPHOSPHAMIDE
     Indication: Neoplasm malignant
     Dosage: 1062 MG, Q3W
     Route: 042
     Dates: start: 20201230, end: 20210122
  5. BIOTIN [Concomitant]
     Active Substance: BIOTIN
     Indication: Alopecia
     Dosage: 10 MG, QD
     Route: 048
     Dates: start: 20200525, end: 20210202
  6. CETIRIZINE HYDROCHLORIDE [Concomitant]
     Active Substance: CETIRIZINE HYDROCHLORIDE
     Indication: Paraesthesia
     Dosage: 10 MG, QD
     Route: 048
     Dates: start: 20200803, end: 20210202
  7. CETIRIZINE HYDROCHLORIDE [Concomitant]
     Active Substance: CETIRIZINE HYDROCHLORIDE
     Indication: Rash
  8. EUCERIN UREA [Concomitant]
     Indication: Pruritus
     Dosage: 1 UNITS, BID
     Route: 004
     Dates: start: 20200721, end: 20210212
  9. EUCERIN UREA [Concomitant]
     Indication: Rash
  10. BEPANTHEN [Concomitant]
     Indication: Rash
     Dosage: 2.20 UNITS, BID
     Route: 004
     Dates: start: 20201111, end: 20201202
  11. DOCETAXEL [Concomitant]
     Active Substance: DOCETAXEL
     Indication: Chemotherapy
     Dosage: 4X, Q3W
     Route: 065
     Dates: start: 20201230
  12. METAMIZOLE [Concomitant]
     Active Substance: METAMIZOLE
     Indication: Headache
     Dosage: ON DEMAND
     Route: 065
  13. METAMIZOLE [Concomitant]
     Active Substance: METAMIZOLE
     Indication: Vomiting
  14. METAMIZOLE [Concomitant]
     Active Substance: METAMIZOLE
     Indication: Headache
  15. METAMIZOLE [Concomitant]
     Active Substance: METAMIZOLE
     Indication: Nausea
  16. METOCLOPRAMIDE [Concomitant]
     Active Substance: METOCLOPRAMIDE
     Indication: Headache
     Dosage: UNK
     Route: 065
  17. METOCLOPRAMIDE [Concomitant]
     Active Substance: METOCLOPRAMIDE
     Indication: Vomiting
  18. METOCLOPRAMIDE [Concomitant]
     Active Substance: METOCLOPRAMIDE
     Indication: Nausea
  19. METOCLOPRAMIDE [Concomitant]
     Active Substance: METOCLOPRAMIDE
     Indication: Headache
  20. CIPROFLOXACIN [Concomitant]
     Active Substance: CIPROFLOXACIN
     Indication: Prophylaxis
     Dosage: 500 MG, BID FOR 5 DAYS
     Route: 065
     Dates: start: 20210212
  21. CIPROFLOXACIN [Concomitant]
     Active Substance: CIPROFLOXACIN
     Indication: Leukopenia
  22. ACETAMINOPHEN [Concomitant]
     Active Substance: ACETAMINOPHEN
     Indication: Product used for unknown indication
     Route: 065

REACTIONS (1)
  - Transaminases increased [Recovered/Resolved]

NARRATIVE: CASE EVENT DATE: 20210212
